FAERS Safety Report 7054019-5 (Version None)
Quarter: 2010Q4

REPORT INFORMATION
  Report Type: 
  Country: None (occurrence: None)
  Receive Date: 20101020
  Receipt Date: 20101015
  Transmission Date: 20110411
  Serious: Yes (Other)
  Sender: FDA-Public Use
  Company Number: GB-TEVA-252040ISR

PATIENT
  Age: 71 Year
  Sex: Male

DRUGS (2)
  1. TRIMETHOPRIM [Suspect]
     Dates: start: 20090501
  2. NITROFURANTOIN [Suspect]
     Indication: URINARY TRACT INFECTION
     Route: 048
     Dates: start: 20080101, end: 20090901

REACTIONS (5)
  - DYSPNOEA [None]
  - MOVEMENT DISORDER [None]
  - NAUSEA [None]
  - NEUROPATHY PERIPHERAL [None]
  - VOMITING [None]
